FAERS Safety Report 18729273 (Version 5)
Quarter: 2021Q3

REPORT INFORMATION
  Report Type: Spontaneous
  Country: FR (occurrence: FR)
  Receive Date: 20210112
  Receipt Date: 20210806
  Transmission Date: 20211014
  Serious: Yes (Disabling, Other)
  Sender: FDA-Public Use
  Company Number: FR-GLAXOSMITHKLINE-FR2020EME233548

PATIENT
  Sex: Male

DRUGS (23)
  1. REQUIP LP [Suspect]
     Active Substance: ROPINIROLE HYDROCHLORIDE
     Dosage: 2 MG, QD, 1 TABLET IN THE MORNING
  2. SIFROL [Concomitant]
     Active Substance: PRAMIPEXOLE
     Dosage: 4 DF, QD, 0.26 MG, PLQ/30
  3. MODOPAR [Concomitant]
     Active Substance: BENSERAZIDE HYDROCHLORIDE\LEVODOPA
     Dosage: 1 DF, BID
  4. MODOPAR [Concomitant]
     Active Substance: BENSERAZIDE HYDROCHLORIDE\LEVODOPA
     Dosage: 125 MG,EVERY 6 HOURS
  5. REQUIP LP [Suspect]
     Active Substance: ROPINIROLE HYDROCHLORIDE
     Indication: PARKINSON^S DISEASE
     Dosage: UNK, 250
     Route: 048
     Dates: start: 20180130
  6. REQUIP LP [Suspect]
     Active Substance: ROPINIROLE HYDROCHLORIDE
     Dosage: 4 MG, QD, 2 TABLET IN THE MORNING
  7. AZILECT [Concomitant]
     Active Substance: RASAGILINE MESYLATE
     Indication: PARKINSON^S DISEASE
     Dosage: 1 DF, QD, 1 MG IN THE MORNING
     Dates: start: 20170505
  8. SIFROL [Concomitant]
     Active Substance: PRAMIPEXOLE
     Indication: PARKINSON^S DISEASE
     Dosage: 1 DF, QD, 0.26 MG
     Dates: start: 2017
  9. SIFROL [Concomitant]
     Active Substance: PRAMIPEXOLE
     Dosage: 3 DF, QD, 0.26 MG
     Dates: start: 2017
  10. MODOPAR [Concomitant]
     Active Substance: BENSERAZIDE HYDROCHLORIDE\LEVODOPA
     Indication: PARKINSON^S DISEASE
     Dosage: 1 DF, QD
  11. REQUIP LP [Suspect]
     Active Substance: ROPINIROLE HYDROCHLORIDE
     Dosage: 4 MG, QD, 2 TABLET IN THE MORNING
  12. REQUIP LP [Suspect]
     Active Substance: ROPINIROLE HYDROCHLORIDE
     Dosage: 2 MG, QD
  13. SIFROL [Concomitant]
     Active Substance: PRAMIPEXOLE
     Dosage: 2 DF, QD, 0.26 MG
  14. REQUIP LP [Suspect]
     Active Substance: ROPINIROLE HYDROCHLORIDE
     Dosage: 20 MG, QD, DOSE INCREASE
     Dates: start: 201804
  15. MODOPAR [Concomitant]
     Active Substance: BENSERAZIDE HYDROCHLORIDE\LEVODOPA
     Dosage: 62.5 MG, TID
  16. REQUIP LP [Suspect]
     Active Substance: ROPINIROLE HYDROCHLORIDE
     Dosage: 16 MG, QD
  17. REQUIP LP [Suspect]
     Active Substance: ROPINIROLE HYDROCHLORIDE
     Dosage: 8 MG, QD TAKE OVER THE SIFROL
  18. REQUIP LP [Suspect]
     Active Substance: ROPINIROLE HYDROCHLORIDE
     Dosage: 6 MG, QD, 3 TABLET IN THE MORNING
  19. AZILECT [Concomitant]
     Active Substance: RASAGILINE MESYLATE
     Dosage: 1 DF, QD, 1 MG IN THE MORNING
  20. REQUIP LP [Suspect]
     Active Substance: ROPINIROLE HYDROCHLORIDE
     Dosage: 4 MG, QD, 2 TABLET IN THE MORNING
  21. REQUIP LP [Suspect]
     Active Substance: ROPINIROLE HYDROCHLORIDE
     Dosage: 2 MG, QD, THEN FULL SHUTDOWN
     Dates: end: 202010
  22. MODOPAR [Concomitant]
     Active Substance: BENSERAZIDE HYDROCHLORIDE\LEVODOPA
     Dosage: 1 DF, TID
  23. LEVODOPA [Concomitant]
     Active Substance: LEVODOPA
     Indication: PRODUCT USED FOR UNKNOWN INDICATION
     Dosage: UNK

REACTIONS (25)
  - Memory impairment [Unknown]
  - Somnolence [Unknown]
  - Sleep disorder [Unknown]
  - Alcohol abuse [Unknown]
  - Confusional state [Unknown]
  - Dependence [Not Recovered/Not Resolved]
  - Anxiety [Unknown]
  - Constipation [Unknown]
  - Disease susceptibility [Unknown]
  - Anger [Unknown]
  - Balance disorder [Unknown]
  - Self esteem decreased [Unknown]
  - Obsessive-compulsive disorder [Unknown]
  - Illness [Unknown]
  - Delusion [Unknown]
  - Emotional distress [Unknown]
  - Decreased appetite [Unknown]
  - Weight decreased [Unknown]
  - Tremor [Unknown]
  - On and off phenomenon [Unknown]
  - Loss of personal independence in daily activities [Unknown]
  - Abnormal behaviour [Unknown]
  - Gambling [Unknown]
  - Compulsive sexual behaviour [Unknown]
  - Attention deficit hyperactivity disorder [Unknown]

NARRATIVE: CASE EVENT DATE: 2018
